FAERS Safety Report 15698219 (Version 1)
Quarter: 2018Q4

REPORT INFORMATION
  Report Type: Spontaneous
  Country: US (occurrence: US)
  Receive Date: 20181206
  Receipt Date: 20181206
  Transmission Date: 20190205
  Serious: Yes (Life-Threatening, Disabling, Other)
  Sender: FDA-Public Use
  Company Number: None

PATIENT
  Age: 41 Year
  Sex: Female
  Weight: 81 kg

DRUGS (4)
  1. DULOXETINE. [Suspect]
     Active Substance: DULOXETINE
     Indication: ANXIETY
     Dosage: ?          QUANTITY:1 CAPSULE(S);?
     Route: 048
     Dates: start: 20150706, end: 20181111
  2. MULTIVITAMINS [Concomitant]
     Active Substance: VITAMINS
  3. DULOXETINE. [Suspect]
     Active Substance: DULOXETINE
     Indication: DEPRESSION
     Dosage: ?          QUANTITY:1 CAPSULE(S);?
     Route: 048
     Dates: start: 20150706, end: 20181111
  4. PSILOCYBINE [Concomitant]
     Active Substance: PSILOCYBINE

REACTIONS (2)
  - Drug withdrawal syndrome [None]
  - Suicidal ideation [None]

NARRATIVE: CASE EVENT DATE: 20181113
